FAERS Safety Report 15344723 (Version 2)
Quarter: 2018Q3

REPORT INFORMATION
  Report Type: Spontaneous
  Country: NL (occurrence: NL)
  Receive Date: 20180903
  Receipt Date: 20180903
  Transmission Date: 20181010
  Serious: Yes (Hospitalization, Other)
  Sender: FDA-Public Use
  Company Number: PHHY2018NL084320

PATIENT
  Sex: Male

DRUGS (9)
  1. PREDNISONE. [Suspect]
     Active Substance: PREDNISONE
     Indication: ACUTE LYMPHOCYTIC LEUKAEMIA
     Dosage: 85 MG, UNK
     Route: 065
     Dates: start: 20150304
  2. METHOTREXATE. [Suspect]
     Active Substance: METHOTREXATE
     Dosage: 12.5 MG, UNK
     Route: 048
     Dates: start: 20150314
  3. METHOTREXATE. [Suspect]
     Active Substance: METHOTREXATE
     Indication: ACUTE LYMPHOCYTIC LEUKAEMIA
     Dosage: 15 MG, UNK
     Route: 037
     Dates: start: 20150304, end: 20150708
  4. IMATINIB [Suspect]
     Active Substance: IMATINIB
     Indication: ACUTE LYMPHOCYTIC LEUKAEMIA
     Dosage: 600 MG, UNK
     Route: 065
     Dates: start: 20140630
  5. 6?MERCAPTOPURINE MONOHYDRATE [Suspect]
     Active Substance: MERCAPTOPURINE
     Indication: ACUTE LYMPHOCYTIC LEUKAEMIA
     Dosage: 75 MG, UNK
     Route: 065
     Dates: start: 20150304
  6. DEXAMETHASONE. [Suspect]
     Active Substance: DEXAMETHASONE
     Dosage: 4 MG, UNK
     Route: 037
     Dates: start: 20150304
  7. PEGASPARGASE [Suspect]
     Active Substance: PEGASPARGASE
     Indication: ACUTE LYMPHOCYTIC LEUKAEMIA
     Route: 065
  8. VINCRISTINE [Suspect]
     Active Substance: VINCRISTINE
     Indication: ACUTE LYMPHOCYTIC LEUKAEMIA
     Dosage: 2 MG, UNK
     Route: 065
     Dates: start: 20150304
  9. CLOFARABINE. [Suspect]
     Active Substance: CLOFARABINE
     Indication: ACUTE LYMPHOCYTIC LEUKAEMIA
     Dosage: 58 MG, UNK
     Route: 065
     Dates: start: 20140624, end: 20140905

REACTIONS (1)
  - Ureteric obstruction [Recovered/Resolved]

NARRATIVE: CASE EVENT DATE: 20150815
